FAERS Safety Report 10035771 (Version 2)
Quarter: 2014Q2

REPORT INFORMATION
  Report Type: Spontaneous
  Country: US (occurrence: US)
  Receive Date: 20140325
  Receipt Date: 20140415
  Transmission Date: 20141212
  Serious: Yes (Other)
  Sender: FDA-Public Use
  Company Number: US-TEVA-470881USA

PATIENT
  Age: 44 Year
  Sex: Female
  Weight: 84.44 kg

DRUGS (2)
  1. COPAXONE [Suspect]
     Indication: MULTIPLE SCLEROSIS
     Dosage: 20 MILLIGRAM DAILY;
     Dates: start: 2005
  2. CLONAZEPAM [Concomitant]
     Route: 048

REACTIONS (7)
  - Injection site necrosis [Not Recovered/Not Resolved]
  - Skin exfoliation [Not Recovered/Not Resolved]
  - Pain of skin [Not Recovered/Not Resolved]
  - Injection site haematoma [Unknown]
  - Injection site atrophy [Recovering/Resolving]
  - Injection site necrosis [Recovering/Resolving]
  - Injection site reaction [Recovering/Resolving]
